FAERS Safety Report 6233286-1 (Version None)
Quarter: 2009Q2

REPORT INFORMATION
  Report Type: 
  Country: None (occurrence: None)
  Receive Date: 20090617
  Receipt Date: 20090610
  Transmission Date: 20091009
  Serious: Yes (Other)
  Sender: FDA-Public Use
  Company Number: JP-MERCK-0906USA01624

PATIENT
  Age: 76 Year
  Sex: Female

DRUGS (3)
  1. FOSAMAX [Suspect]
     Indication: OSTEOPOROSIS
     Route: 048
     Dates: start: 20071025, end: 20090525
  2. FOSAMAX [Suspect]
     Route: 048
     Dates: start: 20090501, end: 20090501
  3. BENET [Suspect]
     Indication: OSTEOPOROSIS
     Route: 048
     Dates: start: 20041125, end: 20071025

REACTIONS (2)
  - BONE ABSCESS [None]
  - OSTEOMYELITIS [None]
